FAERS Safety Report 23988515 (Version 1)
Quarter: 2024Q2

REPORT INFORMATION
  Report Type: Report from Study
  Country: CA (occurrence: CA)
  Receive Date: 20240619
  Receipt Date: 20240619
  Transmission Date: 20240716
  Serious: Yes (Other)
  Sender: FDA-Public Use
  Company Number: CA-ABBVIE-5802778

PATIENT
  Sex: Female
  Weight: 63.5 kg

DRUGS (1)
  1. SKYRIZI [Suspect]
     Active Substance: RISANKIZUMAB-RZAA
     Indication: Crohn^s disease
     Route: 058
     Dates: start: 20230208

REACTIONS (3)
  - Intestinal obstruction [Unknown]
  - Intestinal stenosis [Unknown]
  - Arthralgia [Recovered/Resolved]
